FAERS Safety Report 25706423 (Version 1)
Quarter: 2025Q3

REPORT INFORMATION
  Report Type: Spontaneous
  Country: IN (occurrence: None)
  Receive Date: 20250820
  Receipt Date: 20250820
  Transmission Date: 20251021
  Serious: Yes (unspecified)
  Sender: FDA-CTU
  Company Number: None

PATIENT
  Age: 20 Year
  Sex: Male
  Weight: 66 kg

DRUGS (1)
  1. VICKS INHALER [Suspect]
     Active Substance: CAMPHOR\MENTHOL\METHYL SALICYLATE\PINE NEEDLE OIL (PINUS MUGO)
     Dates: start: 20250820, end: 20250820

REACTIONS (2)
  - Lacrimation increased [None]
  - Rhinorrhoea [None]

NARRATIVE: CASE EVENT DATE: 20250820
